FAERS Safety Report 8376528-9 (Version None)
Quarter: 2012Q2

REPORT INFORMATION
  Report Type: 
  Country: None (occurrence: None)
  Receive Date: 20120522
  Receipt Date: 20120515
  Transmission Date: 20120825
  Serious: Yes (Other)
  Sender: FDA-Public Use
  Company Number: US-BAYER-2012-049409

PATIENT
  Age: 29 Year
  Sex: Female

DRUGS (4)
  1. YAZ [Suspect]
  2. KEFLEX [Concomitant]
     Dosage: 500 MG, UNK
  3. PANTOPRAZOLE [Concomitant]
     Dosage: 40 MG, UNK
  4. VARIDASA [Concomitant]
     Dosage: UNK UNK, QID

REACTIONS (1)
  - AXILLARY VEIN THROMBOSIS [None]
